FAERS Safety Report 4843981-4 (Version None)
Quarter: 2005Q4

REPORT INFORMATION
  Report Type: 
  Country: None (occurrence: None)
  Receive Date: 20051130
  Receipt Date: 20051130
  Transmission Date: 20060501
  Serious: Yes (Other)
  Sender: FDA-Public Use
  Company Number: None

PATIENT
  Age: 58 Year
  Sex: Female
  Weight: 63.5036 kg

DRUGS (4)
  1. ABILIFY [Suspect]
     Indication: DEPRESSION
     Dosage: 15 MG DAILY PO
     Route: 048
  2. PROZAC [Suspect]
     Indication: DEPRESSION
     Dosage: 20 MG DAILY PO
     Route: 048
  3. PROTONIX [Concomitant]
  4. TYLENOL [Concomitant]

REACTIONS (4)
  - DEPRESSION [None]
  - GAIT DISTURBANCE [None]
  - PARKINSONISM [None]
  - TREMOR [None]
